FAERS Safety Report 21434847 (Version 1)
Quarter: 2022Q4

REPORT INFORMATION
  Report Type: Spontaneous
  Country: FR (occurrence: FR)
  Receive Date: 20221010
  Receipt Date: 20221010
  Transmission Date: 20230113
  Serious: Yes (Hospitalization)
  Sender: FDA-Public Use
  Company Number: None

PATIENT
  Age: 47 Year
  Sex: Female
  Weight: 87 kg

DRUGS (3)
  1. CLOZAPINE [Suspect]
     Active Substance: CLOZAPINE
     Dosage: 100 MG ONE TIME
     Dates: start: 20211226, end: 20211226
  2. ZUCLOPENTHIXOL [Suspect]
     Active Substance: ZUCLOPENTHIXOL
     Dosage: 10 MG ONE TIME
     Dates: start: 20211226, end: 20211226
  3. OXAZEPAM [Suspect]
     Active Substance: OXAZEPAM
     Dosage: STRENGTH: 10 MG, 50 MG IN A SINGLE DOSE
     Dates: start: 20211226, end: 20211226

REACTIONS (6)
  - Pneumonia aspiration [Recovered/Resolved]
  - Somnolence [Recovered/Resolved]
  - Dysarthria [Recovered/Resolved]
  - Hypotonia [Recovered/Resolved]
  - Medication error [Unknown]
  - Hypotension [Recovered/Resolved]

NARRATIVE: CASE EVENT DATE: 20211226
